FAERS Safety Report 8063708-5 (Version None)
Quarter: 2012Q1

REPORT INFORMATION
  Report Type: 
  Country: None (occurrence: None)
  Receive Date: 20120123
  Receipt Date: 20120117
  Transmission Date: 20120608
  Serious: Yes (Life-Threatening, Hospitalization)
  Sender: FDA-Public Use
  Company Number: US-BAYER-2011-058703

PATIENT
  Age: 38 Year
  Sex: Female
  Weight: 81.633 kg

DRUGS (6)
  1. ZYRTEC [Concomitant]
     Indication: MULTIPLE ALLERGIES
     Route: 048
  2. YASMIN [Suspect]
     Indication: CONTRACEPTION
     Dosage: UNK
     Dates: start: 20080101
  3. PRISTIQ [Concomitant]
     Dosage: 100 MG, QD
     Route: 048
  4. GENERIC SUDAPHEN [Concomitant]
     Indication: MULTIPLE ALLERGIES
     Route: 048
  5. YAZ [Suspect]
     Indication: CONTRACEPTION
     Dosage: UNK
     Dates: start: 20080101
  6. DROSPIRENONE AND ETHINYL ESTRADIOL [Suspect]
     Indication: CONTRACEPTION
     Dosage: UNK
     Dates: start: 20080101

REACTIONS (15)
  - FEAR [None]
  - CHEST PAIN [None]
  - FATIGUE [None]
  - DEFORMITY [None]
  - PULMONARY EMBOLISM [None]
  - PNEUMONIA [None]
  - INJURY [None]
  - MUSCLE STRAIN [None]
  - VISUAL IMPAIRMENT [None]
  - PAIN [None]
  - DEEP VEIN THROMBOSIS [None]
  - CHOLELITHIASIS [None]
  - DYSPNOEA [None]
  - ANXIETY [None]
  - ANHEDONIA [None]
